FAERS Safety Report 13122211 (Version 2)
Quarter: 2017Q3

REPORT INFORMATION
  Report Type: Spontaneous
  Country: CA (occurrence: CA)
  Receive Date: 20170117
  Receipt Date: 20170925
  Transmission Date: 20171127
  Serious: Yes (Other)
  Sender: FDA-Public Use
  Company Number: CA-JNJFOC-20170113818

PATIENT
  Age: 66 Year
  Sex: Female
  Weight: 60 kg

DRUGS (15)
  1. AMLODIPINE BESILATE [Suspect]
     Active Substance: AMLODIPINE BESYLATE
     Indication: HYPERTENSION
     Dosage: DOSAGE: UNKNOWN
     Route: 048
  2. ZOPICLONE [Concomitant]
     Active Substance: ZOPICLONE
     Route: 048
  3. XARELTO [Suspect]
     Active Substance: RIVAROXABAN
     Indication: ATRIAL FIBRILLATION
     Dosage: DOSE: UNKNOWN
     Route: 048
     Dates: start: 201612
  4. XARELTO [Suspect]
     Active Substance: RIVAROXABAN
     Indication: ATRIAL FIBRILLATION
     Route: 048
  5. LANSOPRAZOLE. [Concomitant]
     Active Substance: LANSOPRAZOLE
     Route: 048
  6. CALCIUM [Concomitant]
     Active Substance: CALCIUM
     Route: 048
  7. SPIRONOLACTONE. [Concomitant]
     Active Substance: SPIRONOLACTONE
     Route: 048
  8. VENLAFAXINE HYDROCHLORIDE. [Suspect]
     Active Substance: VENLAFAXINE HYDROCHLORIDE
     Indication: DEPRESSION
     Route: 065
  9. NASONEX [Concomitant]
     Active Substance: MOMETASONE FUROATE
     Route: 045
  10. RISEDRONATE SODIUM. [Concomitant]
     Active Substance: RISEDRONATE SODIUM
     Dosage: OW (ONCE WEEKLY)
     Route: 048
  11. ROSUVASTATIN. [Concomitant]
     Active Substance: ROSUVASTATIN
     Route: 048
  12. EZETIMIBE. [Concomitant]
     Active Substance: EZETIMIBE
     Route: 048
  13. ERGOCALCIFEROL. [Concomitant]
     Active Substance: ERGOCALCIFEROL
     Dosage: OW (ONCE WEEKLY)
     Route: 048
  14. EFFEXOR [Suspect]
     Active Substance: VENLAFAXINE HYDROCHLORIDE
     Indication: PRODUCT USED FOR UNKNOWN INDICATION
     Dosage: DOSAGE: UNKNOWN
     Route: 065
  15. DILTIAZEM CD [Concomitant]
     Active Substance: DILTIAZEM
     Route: 048

REACTIONS (5)
  - Palpitations [Recovered/Resolved]
  - Pancreatitis [Unknown]
  - Abdominal discomfort [Recovered/Resolved]
  - Drug intolerance [Recovered/Resolved]
  - Malaise [Recovered/Resolved]
